FAERS Safety Report 4489827-8 (Version None)
Quarter: 2004Q4

REPORT INFORMATION
  Report Type: 
  Country: None (occurrence: None)
  Receive Date: 20041101
  Receipt Date: 20041021
  Transmission Date: 20050328
  Serious: Yes (Death)
  Sender: FDA-Public Use
  Company Number: US-MERCK-0410USA03387

PATIENT

DRUGS (2)
  1. VIOXX [Suspect]
     Indication: FOOT FRACTURE
     Dates: start: 19991001, end: 20040930
  2. VICODIN [Concomitant]

REACTIONS (1)
  - DEATH [None]
